FAERS Safety Report 5276291-4 (Version None)
Quarter: 2007Q1

REPORT INFORMATION
  Report Type: 
  Country: None (occurrence: None)
  Receive Date: 20070326
  Receipt Date: 20070316
  Transmission Date: 20070707
  Serious: Yes (Other)
  Sender: FDA-Public Use
  Company Number: IE-ABBOTT-07P-229-0362156-00

PATIENT
  Age: 12 Month
  Sex: Male

DRUGS (1)
  1. KLACID SUSPENSION [Suspect]
     Indication: LOWER RESPIRATORY TRACT INFECTION
     Dates: start: 20070315

REACTIONS (3)
  - EYE SWELLING [None]
  - HYPERSENSITIVITY [None]
  - SWELLING FACE [None]
